FAERS Safety Report 9881762 (Version 1)
Quarter: 2014Q1

REPORT INFORMATION
  Report Type: Spontaneous
  Country: HU (occurrence: HU)
  Receive Date: 20140207
  Receipt Date: 20140207
  Transmission Date: 20141002
  Serious: Yes (Hospitalization)
  Sender: FDA-Public Use
  Company Number: HU-ABBVIE-14P-076-1196603-00

PATIENT
  Age: 16 Year
  Sex: Female
  Weight: 34.6 kg

DRUGS (2)
  1. HUMIRA [Suspect]
     Indication: CROHN^S DISEASE
     Route: 058
     Dates: start: 20130711, end: 20131114
  2. IMURAN [Concomitant]
     Indication: CROHN^S DISEASE
     Dosage: 2,5 MG / BODY WEIGHT
     Route: 048

REACTIONS (5)
  - Oropharyngeal pain [Recovering/Resolving]
  - Oropharyngeal candidiasis [Unknown]
  - Stomatitis [Recovering/Resolving]
  - Oesophagitis [Recovering/Resolving]
  - Atypical pneumonia [Recovering/Resolving]
